FAERS Safety Report 8205439-4 (Version None)
Quarter: 2012Q1

REPORT INFORMATION
  Report Type: 
  Country: None (occurrence: None)
  Receive Date: 20120309
  Receipt Date: 20120306
  Transmission Date: 20120608
  Serious: Yes (Hospitalization, Disabling, Other)
  Sender: FDA-Public Use
  Company Number: GER/UKI/12/0023267

PATIENT
  Age: 63 Year
  Sex: Female

DRUGS (7)
  1. CLOZARIL [Suspect]
     Indication: SCHIZOPHRENIA
     Dosage: ORAL
     Route: 048
     Dates: start: 19970414
  2. RABEPRAZOLE SODIUM [Concomitant]
  3. FERRUS SULPHATE (IRON) [Concomitant]
  4. OXYBUTYNIN [Concomitant]
  5. RISPERIDONE [Suspect]
     Indication: SCHIZOPHRENIA
     Dosage: 2 MG, ORAL
     Route: 048
     Dates: start: 20110801
  6. SENNA-MINT WAF [Concomitant]
  7. ZOPICLONE (ZOPICLONE) [Concomitant]

REACTIONS (6)
  - DISEASE RECURRENCE [None]
  - SCHIZOPHRENIA [None]
  - MALAISE [None]
  - TREATMENT NONCOMPLIANCE [None]
  - PSYCHOTIC DISORDER [None]
  - MENTAL STATUS CHANGES [None]
